FAERS Safety Report 21885133 (Version 3)
Quarter: 2023Q1

REPORT INFORMATION
  Report Type: Spontaneous
  Country: US (occurrence: US)
  Receive Date: 20230119
  Receipt Date: 20230221
  Transmission Date: 20230417
  Serious: Yes (Other)
  Sender: FDA-Public Use
  Company Number: US-PFIZER INC-PV202300010802

PATIENT
  Age: 66 Year
  Sex: Female
  Weight: 73.016 kg

DRUGS (1)
  1. PAXLOVID [Suspect]
     Active Substance: NIRMATRELVIR\RITONAVIR
     Indication: COVID-19 treatment
     Dosage: UNK, 2X/DAY (TWICE A DAY FOR 5 DAYS BUT ONLY TOOK 4 DAYS)
     Dates: start: 20221219, end: 20221222

REACTIONS (6)
  - Paralysis [Not Recovered/Not Resolved]
  - Swollen tongue [Recovered/Resolved]
  - Tongue discolouration [Recovered/Resolved]
  - Vomiting [Not Recovered/Not Resolved]
  - Hypoaesthesia [Not Recovered/Not Resolved]
  - Incorrect product administration duration [Unknown]

NARRATIVE: CASE EVENT DATE: 20221222
